FAERS Safety Report 9204523 (Version 2)
Quarter: 2013Q2

REPORT INFORMATION
  Report Type: Spontaneous
  Country: US (occurrence: US)
  Receive Date: 20130402
  Receipt Date: 20130408
  Transmission Date: 20140414
  Serious: No
  Sender: FDA-Public Use
  Company Number: US-PFIZER INC-2013100641

PATIENT
  Sex: Female

DRUGS (3)
  1. PREMARIN [Suspect]
     Dosage: 0.3 MG, UNK
     Dates: start: 1996
  2. AMLODIPINE [Concomitant]
     Dosage: 10 MG, UNK
  3. DIOVAN [Concomitant]
     Dosage: 320 MG, UNK

REACTIONS (2)
  - Blood pressure increased [Unknown]
  - Emotional disorder [Unknown]
